FAERS Safety Report 5273906-1 (Version None)
Quarter: 2007Q1

REPORT INFORMATION
  Report Type: 
  Country: None (occurrence: None)
  Receive Date: 20070323
  Receipt Date: 20070314
  Transmission Date: 20070707
  Serious: Yes (Other)
  Sender: FDA-Public Use
  Company Number: PHBS2007US04690

PATIENT
  Age: 61 Year
  Sex: Female

DRUGS (4)
  1. PAMIDRONATE DISODIUM [Suspect]
     Indication: BREAST CANCER METASTATIC
  2. CAPECITABINE [Concomitant]
  3. DOCETAXEL [Concomitant]
  4. EXEMESTANE [Concomitant]

REACTIONS (5)
  - BONE DEBRIDEMENT [None]
  - MOUTH ULCERATION [None]
  - ORAL PAIN [None]
  - OSTEONECROSIS [None]
  - TOOTH EXTRACTION [None]
